FAERS Safety Report 7250928-2 (Version None)
Quarter: 2011Q1

REPORT INFORMATION
  Report Type: 
  Country: None (occurrence: None)
  Receive Date: 20110128
  Receipt Date: 20110125
  Transmission Date: 20110831
  Serious: Yes (Other)
  Sender: FDA-Public Use
  Company Number: A0909125A

PATIENT
  Age: 75 Year
  Sex: Female

DRUGS (3)
  1. LOVAZA [Suspect]
     Dosage: 4CAP PER DAY
     Route: 048
     Dates: start: 20100101
  2. TRILIPIX [Concomitant]
  3. AMLODIPINE [Concomitant]

REACTIONS (2)
  - PNEUMONIA [None]
  - COUGH [None]
